FAERS Safety Report 8606068-0 (Version None)
Quarter: 2012Q3

REPORT INFORMATION
  Report Type: 
  Country: None (occurrence: None)
  Receive Date: 20120820
  Receipt Date: 20120813
  Transmission Date: 20120928
  Serious: Yes (Other)
  Sender: FDA-Public Use
  Company Number: CA-JNJFOC-20120806544

PATIENT

DRUGS (1)
  1. DURAGESIC-12 [Suspect]
     Indication: PAIN
     Route: 062

REACTIONS (2)
  - DRUG DIVERSION [None]
  - TREATMENT NONCOMPLIANCE [None]
